FAERS Safety Report 16003629 (Version 1)
Quarter: 2019Q1

REPORT INFORMATION
  Report Type: Spontaneous
  Country: US (occurrence: US)
  Receive Date: 20190226
  Receipt Date: 20190226
  Transmission Date: 20190418
  Serious: No
  Sender: FDA-Public Use
  Company Number: US-ELI_LILLY_AND_COMPANY-US201902010558

PATIENT
  Sex: Female
  Weight: 71 kg

DRUGS (11)
  1. CYMBALTA [Suspect]
     Active Substance: DULOXETINE HYDROCHLORIDE
     Indication: DEPRESSION
     Dosage: 30 MG, UNKNOWN
     Route: 065
     Dates: start: 2018
  2. KEPPRA [Interacting]
     Active Substance: LEVETIRACETAM
     Indication: TEMPORAL LOBE EPILEPSY
  3. NISTATIN [Interacting]
     Active Substance: NYSTATIN
     Dosage: UNK, PRN
     Route: 065
  4. LYRICA [Interacting]
     Active Substance: PREGABALIN
     Indication: FIBROMYALGIA
     Dosage: 75 MG, BID
     Route: 048
     Dates: start: 20180104
  5. MELOXICAM. [Interacting]
     Active Substance: MELOXICAM
     Indication: OSTEOARTHRITIS
     Dosage: 15 MG, DAILY
     Route: 048
     Dates: start: 201709
  6. XANAX [Interacting]
     Active Substance: ALPRAZOLAM
     Indication: TREMOR
     Dosage: 0.5 MG, UNKNOWN (EVERY 12 HOURS AS NEEDED)
     Route: 048
     Dates: start: 20170816
  7. NISTATIN [Interacting]
     Active Substance: NYSTATIN
     Indication: FUNGAL INFECTION
     Dosage: UNK, TID
     Route: 065
  8. KEPPRA [Interacting]
     Active Substance: LEVETIRACETAM
     Indication: SEIZURE
     Dosage: 750 MG, DAILY
     Route: 048
     Dates: start: 201709
  9. VITAFUSION WOMEN^S [Interacting]
     Active Substance: VITAMINS
     Indication: PRODUCT USED FOR UNKNOWN INDICATION
     Dosage: 2 DF, EACH MORNING
     Route: 048
     Dates: start: 201709
  10. BABY ASPIRIN [Interacting]
     Active Substance: ASPIRIN
     Indication: NON-CARDIAC CHEST PAIN
     Dosage: 81 MG, DAILY
     Route: 048
     Dates: start: 201801
  11. VITAMIN D [Interacting]
     Active Substance: CHOLECALCIFEROL
     Indication: VITAMIN D DECREASED
     Dosage: 1000 IU, EACH MORNING
     Route: 048
     Dates: start: 201709

REACTIONS (5)
  - Drug interaction [Unknown]
  - Malaise [Unknown]
  - Diarrhoea [Unknown]
  - Paraesthesia [Unknown]
  - Nausea [Unknown]
